FAERS Safety Report 10050590 (Version 1)
Quarter: 2014Q2

REPORT INFORMATION
  Report Type: Spontaneous
  Country: US (occurrence: US)
  Receive Date: 20140401
  Receipt Date: 20140401
  Transmission Date: 20141212
  Serious: No
  Sender: FDA-Public Use
  Company Number: US-ASTRAZENECA-2013SE51107

PATIENT
  Age: 58 Year
  Sex: Female
  Weight: 72.6 kg

DRUGS (7)
  1. NEXIUM [Suspect]
     Indication: GASTROOESOPHAGEAL REFLUX DISEASE
     Route: 048
     Dates: end: 201302
  2. NEXIUM [Suspect]
     Indication: GASTROOESOPHAGEAL REFLUX DISEASE
     Route: 048
     Dates: start: 201303, end: 201305
  3. NEXIUM [Suspect]
     Indication: GASTROOESOPHAGEAL REFLUX DISEASE
     Route: 048
     Dates: start: 201305
  4. DIGOXIN [Suspect]
     Indication: ATRIAL FIBRILLATION
     Route: 065
     Dates: start: 20130702
  5. LOSARTAN POTASSIUM [Concomitant]
     Indication: BLOOD PRESSURE
     Dates: start: 1995
  6. XARELTO [Concomitant]
     Dates: start: 20130702
  7. MINERAL MULTIVITAMIN [Concomitant]
     Dosage: 1 CAPSULE DAILY

REACTIONS (15)
  - Gastrooesophageal reflux disease [Unknown]
  - Cough [Unknown]
  - Dyspepsia [Unknown]
  - Chest discomfort [Unknown]
  - Dyspnoea [Unknown]
  - Dyspnoea exertional [Unknown]
  - Temperature intolerance [Unknown]
  - Asthma [Recovered/Resolved]
  - Atrial fibrillation [Unknown]
  - Chest pain [Unknown]
  - Abdominal pain upper [Unknown]
  - Abdominal discomfort [Unknown]
  - Drug ineffective [Unknown]
  - Intentional product misuse [Unknown]
  - Off label use [Unknown]
